FAERS Safety Report 24875010 (Version 4)
Quarter: 2025Q1

REPORT INFORMATION
  Report Type: Spontaneous
  Country: JP (occurrence: JP)
  Receive Date: 20250122
  Receipt Date: 20250325
  Transmission Date: 20250409
  Serious: Yes (Death, Life-Threatening, Hospitalization, Other)
  Sender: ALEXION PHARMACEUTICALS
  Company Number: JP-ASTRAZENECA-240105434_012620_P_1

PATIENT
  Age: 70 Year
  Weight: 49 kg

DRUGS (13)
  1. TRUQAP [Suspect]
     Active Substance: CAPIVASERTIB
     Indication: Breast cancer
     Dosage: FOUR CONSECUTIVE DAYS ON TREATMENT FOLLOWED BY THREE DAYS OFF TREATMENT.
  2. TRUQAP [Suspect]
     Active Substance: CAPIVASERTIB
     Dosage: FOUR CONSECUTIVE DAYS ON TREATMENT FOLLOWED BY THREE DAYS OFF TREATMENT.
  3. FULVESTRANT [Suspect]
     Active Substance: FULVESTRANT
     Indication: Breast cancer
  4. FULVESTRANT [Suspect]
     Active Substance: FULVESTRANT
     Dosage: 500 MILLIGRAM, Q4W
  5. PREDONINE [Suspect]
     Active Substance: PREDNISOLONE
     Route: 065
  6. ROSUVASTATIN [Concomitant]
     Active Substance: ROSUVASTATIN
     Indication: Hypercholesterolaemia
  7. ROSUVASTATIN [Concomitant]
     Active Substance: ROSUVASTATIN
  8. RABEPRAZOLE SODIUM [Concomitant]
     Active Substance: RABEPRAZOLE SODIUM
     Indication: Gastric ulcer
  9. RABEPRAZOLE SODIUM [Concomitant]
     Active Substance: RABEPRAZOLE SODIUM
  10. ZOLPIDEM TARTRATE [Concomitant]
     Active Substance: ZOLPIDEM TARTRATE
     Indication: Insomnia
  11. ZOLPIDEM TARTRATE [Concomitant]
     Active Substance: ZOLPIDEM TARTRATE
  12. Hachiazule [Concomitant]
     Indication: Stomatitis
  13. Hachiazule [Concomitant]

REACTIONS (7)
  - Rash maculo-papular [Recovering/Resolving]
  - Acute kidney injury [Recovering/Resolving]
  - Duodenal perforation [Fatal]
  - Dehydration [Recovering/Resolving]
  - Diarrhoea [Recovering/Resolving]
  - Nausea [Not Recovered/Not Resolved]
  - Vomiting [Not Recovered/Not Resolved]
